FAERS Safety Report 8872550 (Version 1)
Quarter: 2012Q4

REPORT INFORMATION
  Report Type: 
  Country: US (occurrence: US)
  Receive Date: 20121030
  Receipt Date: 20121030
  Transmission Date: 20130627
  Serious: Yes (Other)
  Sender: FDA-Public Use
  Company Number: US-AMGEN-USASP2012066654

PATIENT
  Age: 0 Year
  Sex: Male

DRUGS (6)
  1. NEULASTA [Suspect]
     Dosage: 6 mg, q2wk
     Route: 064
     Dates: start: 20120112, end: 20120524
  2. DECADRON                           /00016001/ [Concomitant]
     Dosage: UNK
  3. ADRIAMYCIN                         /00330901/ [Concomitant]
     Dosage: UNK UNK, q2wk
     Route: 064
     Dates: start: 20120111, end: 20120222
  4. CYTOXAN [Concomitant]
     Dosage: UNK UNK, q2wk
     Route: 064
     Dates: start: 20120111, end: 20120222
  5. TAXOL [Concomitant]
     Dosage: 323 mg, q2wk
     Dates: start: 20120411, end: 20120523
  6. CELEXA                             /00582602/ [Concomitant]
     Dosage: 20 mg, qd
     Route: 064

REACTIONS (2)
  - Premature baby [Unknown]
  - Amniotic fluid volume decreased [Recovered/Resolved]
